FAERS Safety Report 9714348 (Version 1)
Quarter: 2013Q4

REPORT INFORMATION
  Report Type: Spontaneous
  Country: FR (occurrence: FR)
  Receive Date: 20131126
  Receipt Date: 20131126
  Transmission Date: 20140711
  Serious: Yes (Hospitalization)
  Sender: FDA-Public Use
  Company Number: FR-PFIZER INC-2013335753

PATIENT
  Age: 5 Year
  Sex: Male

DRUGS (3)
  1. ORELOX [Suspect]
     Indication: BRONCHITIS
     Dosage: UNK
     Route: 048
     Dates: start: 2013
  2. DOLIPRANE [Concomitant]
     Indication: BRONCHITIS
     Dosage: UNK
  3. PNEUMOREL [Concomitant]
     Indication: BRONCHITIS
     Dosage: UNK

REACTIONS (5)
  - Somnolence [Recovering/Resolving]
  - Gait disturbance [Recovering/Resolving]
  - Electroencephalogram abnormal [Recovering/Resolving]
  - Tremor [Recovered/Resolved]
  - Eye movement disorder [Recovered/Resolved]
